FAERS Safety Report 24583959 (Version 1)
Quarter: 2024Q4

REPORT INFORMATION
  Report Type: Spontaneous
  Country: KR (occurrence: KR)
  Receive Date: 20241106
  Receipt Date: 20241106
  Transmission Date: 20250114
  Serious: Yes (Hospitalization)
  Sender: ENDO
  Company Number: KR-ENDO USA, INC.-2024-050279

PATIENT
  Age: 7 Year
  Sex: Male
  Weight: 20 kg

DRUGS (1)
  1. KETALAR [Suspect]
     Active Substance: KETAMINE HYDROCHLORIDE
     Indication: Sedative therapy
     Dosage: 80 MILLIGRAM, SINGLE (4 MG/KG)
     Route: 030

REACTIONS (1)
  - Generalised tonic-clonic seizure [Recovered/Resolved]
